FAERS Safety Report 9846545 (Version 3)
Quarter: 2014Q1

REPORT INFORMATION
  Report Type: Spontaneous
  Country: US (occurrence: US)
  Receive Date: 20140127
  Receipt Date: 20140312
  Transmission Date: 20141002
  Serious: No
  Sender: FDA-Public Use
  Company Number: US-GILEAD-2014-0093018

PATIENT
  Sex: Female

DRUGS (4)
  1. LETAIRIS [Suspect]
     Indication: PULMONARY HYPERTENSION
     Dosage: 5 MG, QD
     Dates: start: 20130926
  2. LETAIRIS [Suspect]
     Indication: DRUG ABUSE
  3. REMODULIN [Suspect]
     Indication: PRODUCT USED FOR UNKNOWN INDICATION
     Route: 058
  4. REVATIO [Concomitant]

REACTIONS (2)
  - Infusion site haemorrhage [Unknown]
  - Pain [Unknown]
